FAERS Safety Report 22356036 (Version 1)
Quarter: 2023Q2

REPORT INFORMATION
  Report Type: Report from Study
  Country: CN (occurrence: CN)
  Receive Date: 20230523
  Receipt Date: 20230523
  Transmission Date: 20230722
  Serious: Yes (Hospitalization, Other)
  Sender: FDA-Public Use
  Company Number: CN-ELI_LILLY_AND_COMPANY-CN202305006568

PATIENT
  Sex: Male

DRUGS (14)
  1. CYRAMZA [Suspect]
     Active Substance: RAMUCIRUMAB
     Indication: Gastric cancer
     Dosage: 480 MG, CYCLICAL (EVERY 2 WEEKS)
     Route: 041
     Dates: start: 20221128
  2. CYRAMZA [Suspect]
     Active Substance: RAMUCIRUMAB
     Dosage: 480 MG, CYCLICAL (EVERY 2 WEEKS)
     Route: 041
     Dates: start: 20221212
  3. CYRAMZA [Suspect]
     Active Substance: RAMUCIRUMAB
     Dosage: 480 MG, CYCLICAL (EVERY 2 WEEKS)
     Route: 041
     Dates: start: 20221226
  4. CYRAMZA [Suspect]
     Active Substance: RAMUCIRUMAB
     Dosage: 480 MG, CYCLICAL (EVERY 2 WEEKS)
     Route: 041
     Dates: start: 20230109
  5. CYRAMZA [Suspect]
     Active Substance: RAMUCIRUMAB
     Dosage: 480 MG, CYCLICAL (EVERY 2 WEEKS)
     Route: 041
     Dates: start: 20230128
  6. CYRAMZA [Suspect]
     Active Substance: RAMUCIRUMAB
     Dosage: 480 MG, CYCLICAL (EVERY 2 WEEKS)
     Route: 041
     Dates: start: 20230316
  7. CYRAMZA [Suspect]
     Active Substance: RAMUCIRUMAB
     Dosage: 480 MG, CYCLICAL (EVERY 2 WEEKS)
     Route: 041
     Dates: start: 20230330
  8. PACLITAXEL [Suspect]
     Active Substance: PACLITAXEL
     Indication: Gastric cancer
     Dosage: 200 MG, CYCLICAL (EVERY 2 WEEKS)
     Route: 041
     Dates: start: 20221128
  9. PACLITAXEL [Suspect]
     Active Substance: PACLITAXEL
     Dosage: 200 MG, CYCLICAL (EVERY 2 WEEKS)
     Route: 041
     Dates: start: 20221212
  10. PACLITAXEL [Suspect]
     Active Substance: PACLITAXEL
     Dosage: 200 MG, CYCLICAL (EVERY 2 WEEKS)
     Route: 041
     Dates: start: 20221226
  11. PACLITAXEL [Suspect]
     Active Substance: PACLITAXEL
     Dosage: 200 MG, CYCLICAL (EVERY 2 WEEKS)
     Route: 041
     Dates: start: 20230109
  12. PACLITAXEL [Suspect]
     Active Substance: PACLITAXEL
     Dosage: 200 MG, CYCLICAL (EVERY 2 WEEKS)
     Route: 041
     Dates: start: 20230128
  13. PACLITAXEL [Suspect]
     Active Substance: PACLITAXEL
     Dosage: 200 MG, CYCLICAL (EVERY 2 WEEKS)
     Route: 041
     Dates: start: 20230316
  14. PACLITAXEL [Suspect]
     Active Substance: PACLITAXEL
     Dosage: 200 MG, CYCLICAL (EVERY 2 WEEKS)
     Route: 041
     Dates: start: 20230330

REACTIONS (5)
  - Complication associated with device [Unknown]
  - Abdominal distension [Unknown]
  - Jaundice cholestatic [Recovering/Resolving]
  - Abdominal pain upper [Unknown]
  - Diarrhoea [Recovering/Resolving]
